FAERS Safety Report 9567815 (Version 1)
Quarter: 2013Q3

REPORT INFORMATION
  Report Type: Spontaneous
  Country: US (occurrence: US)
  Receive Date: 20130930
  Receipt Date: 20130930
  Transmission Date: 20140515
  Serious: No
  Sender: FDA-Public Use
  Company Number: US-AMGEN-USASP2013029507

PATIENT
  Age: 62 Year
  Sex: Female

DRUGS (5)
  1. ENBREL [Suspect]
     Indication: RHEUMATOID ARTHRITIS
     Dosage: 50 MG, QWK
     Route: 058
  2. ALLOPURINOL [Concomitant]
     Dosage: UNK
  3. CITRACAL                           /00751520/ [Concomitant]
     Dosage: UNK
  4. SOMA [Concomitant]
     Dosage: UNK
  5. TOPROL [Concomitant]
     Dosage: UNK

REACTIONS (1)
  - Drug ineffective [Unknown]
